FAERS Safety Report 4565881-X (Version None)
Quarter: 2005Q1

REPORT INFORMATION
  Report Type: 
  Country: None (occurrence: None)
  Receive Date: 20050131
  Receipt Date: 20050120
  Transmission Date: 20050727
  Serious: Yes (Other)
  Sender: FDA-Public Use
  Company Number: PT-AMGEN-UK108767

PATIENT
  Sex: Female
  Weight: 67 kg

DRUGS (2)
  1. ARANESP [Suspect]
     Indication: DRUG USE FOR UNKNOWN INDICATION
     Route: 058
     Dates: start: 20040928, end: 20041221
  2. ALLOPURINOL [Concomitant]
     Route: 048
     Dates: start: 20040814, end: 20041214

REACTIONS (2)
  - REACTION TO MEDICAL AGENT PRESERVATIVES [None]
  - TOXIC SKIN ERUPTION [None]
